FAERS Safety Report 7957487-7 (Version None)
Quarter: 2011Q4

REPORT INFORMATION
  Report Type: 
  Country: None (occurrence: None)
  Receive Date: 20111205
  Receipt Date: 20111205
  Transmission Date: 20120403
  Serious: Yes (Death, Hospitalization)
  Sender: FDA-Public Use
  Company Number: US-GLAXOSMITHKLINE-A0903076A

PATIENT
  Age: 64 Year
  Sex: Male

DRUGS (10)
  1. INSULIN [Concomitant]
  2. AVANDIA [Suspect]
     Indication: DIABETES MELLITUS
     Dosage: 4MG TWICE PER DAY
     Route: 048
     Dates: start: 20000101, end: 20090720
  3. COREG [Concomitant]
  4. ZOCOR [Concomitant]
  5. AVAPRO [Concomitant]
  6. NORVASC [Concomitant]
  7. PRILOSEC [Concomitant]
  8. ULTRACET [Concomitant]
  9. ALTACE [Concomitant]
  10. PROMETHAZINE [Concomitant]

REACTIONS (3)
  - MYOCARDIAL INFARCTION [None]
  - DEATH [None]
  - CORONARY ARTERY DISEASE [None]
